FAERS Safety Report 6016918-2 (Version None)
Quarter: 2008Q4

REPORT INFORMATION
  Report Type: 
  Country: None (occurrence: None)
  Receive Date: 20081218
  Receipt Date: 20081212
  Transmission Date: 20090506
  Serious: Yes (Other)
  Sender: FDA-Public Use
  Company Number: CHPA2008US22170

PATIENT
  Age: 75 Year
  Sex: Female

DRUGS (2)
  1. BUFFERIN [Suspect]
     Indication: ARTHRITIS
     Dosage: 1 DF, BID, ORAL
     Route: 048
     Dates: start: 20020101
  2. BUFFERIN [Suspect]
     Indication: THROMBOSIS PROPHYLAXIS
     Dosage: 1 DF, BID, ORAL
     Route: 048
     Dates: start: 20020101

REACTIONS (1)
  - BREAST CANCER [None]
